FAERS Safety Report 4358070-5 (Version None)
Quarter: 2004Q2

REPORT INFORMATION
  Report Type: 
  Country: None (occurrence: None)
  Receive Date: 20040513
  Receipt Date: 20040506
  Transmission Date: 20050107
  Serious: Yes (Death)
  Sender: FDA-Public Use
  Company Number: 04-02-0298

PATIENT
  Age: 56 Year
  Sex: Male
  Weight: 60.782 kg

DRUGS (5)
  1. CLOZAPINE [Suspect]
     Indication: SCHIZOAFFECTIVE DISORDER
     Dosage: 100MG QAM ORAL;  500MG QHS ORAL  ( DURATION: YEAR(S) )
     Route: 048
  2. TRILEPTAL [Concomitant]
  3. PROSCAR [Concomitant]
  4. FLORINEF [Concomitant]
  5. DETROL LA [Concomitant]

REACTIONS (7)
  - ASPIRATION [None]
  - CHOKING [None]
  - FALL [None]
  - LOSS OF CONSCIOUSNESS [None]
  - PULSE ABSENT [None]
  - RESPIRATORY ARREST [None]
  - VOMITING [None]
